FAERS Safety Report 15613712 (Version 1)
Quarter: 2018Q4

REPORT INFORMATION
  Report Type: Spontaneous
  Country: US (occurrence: US)
  Receive Date: 20181113
  Receipt Date: 20181113
  Transmission Date: 20190205
  Serious: No
  Sender: FDA-Public Use
  Company Number: US-AQUA PHARMACEUTICALS-2018AQU000175

PATIENT

DRUGS (5)
  1. VERDESO [Suspect]
     Active Substance: DESONIDE
     Indication: SKIN IRRITATION
  2. AMLODIPINE [Concomitant]
     Active Substance: AMLODIPINE BESYLATE
     Indication: PRODUCT USED FOR UNKNOWN INDICATION
  3. PREDNISONE. [Concomitant]
     Active Substance: PREDNISONE
     Indication: PRODUCT USED FOR UNKNOWN INDICATION
  4. FINASTERIDE. [Concomitant]
     Active Substance: FINASTERIDE
     Indication: PRODUCT USED FOR UNKNOWN INDICATION
  5. VERDESO [Suspect]
     Active Substance: DESONIDE
     Indication: SKIN DISCOLOURATION
     Dosage: UNK
     Route: 061
     Dates: start: 20180606

REACTIONS (2)
  - Application site dryness [Unknown]
  - Application site pain [Unknown]

NARRATIVE: CASE EVENT DATE: 20180607
